FAERS Safety Report 6763072-5 (Version None)
Quarter: 2010Q2

REPORT INFORMATION
  Report Type: 
  Country: None (occurrence: None)
  Receive Date: 20100609
  Receipt Date: 20100604
  Transmission Date: 20101027
  Serious: Yes (Death)
  Sender: FDA-Public Use
  Company Number: US-CEPHALON-2010003133

PATIENT

DRUGS (1)
  1. TREANDA [Suspect]
     Route: 042
     Dates: start: 20100216, end: 20100302

REACTIONS (1)
  - DEATH [None]
